FAERS Safety Report 21797410 (Version 1)
Quarter: 2022Q4

REPORT INFORMATION
  Report Type: Report from Study
  Country: US (occurrence: US)
  Receive Date: 20221230
  Receipt Date: 20221230
  Transmission Date: 20230113
  Serious: Yes (Other)
  Sender: FDA-Public Use
  Company Number: US-002147023-NVSC2022US300303

PATIENT
  Sex: Female

DRUGS (1)
  1. PROMACTA [Suspect]
     Active Substance: ELTROMBOPAG OLAMINE
     Indication: Full blood count decreased
     Dosage: 50 MG, QD
     Route: 048

REACTIONS (5)
  - Influenza [Unknown]
  - Haemorrhoidal haemorrhage [Recovered/Resolved]
  - Epistaxis [Recovered/Resolved]
  - Alopecia [Unknown]
  - Platelet count decreased [Unknown]
